FAERS Safety Report 17201642 (Version 1)
Quarter: 2019Q4

REPORT INFORMATION
  Report Type: Report from Study
  Country: US (occurrence: US)
  Receive Date: 20191226
  Receipt Date: 20191226
  Transmission Date: 20200122
  Serious: Yes (Death, Hospitalization)
  Sender: FDA-Public Use
  Company Number: US-PFIZER INC-2019549744

PATIENT

DRUGS (2)
  1. PHENYTOIN SODIUM. [Suspect]
     Active Substance: PHENYTOIN SODIUM
     Indication: EPILEPSY
     Dosage: UNK (PHENYTOIN FOR 1 WEEK BEFORE ENROLLMENT)
  2. CARBAMAZEPINE. [Suspect]
     Active Substance: CARBAMAZEPINE
     Indication: EPILEPSY
     Dosage: UNK (COULD BE TITRATED BY 200 MG EVERY 2 WEEKS TO 600 MG/DAY.)

REACTIONS (2)
  - Multiple organ dysfunction syndrome [Fatal]
  - Hypersensitivity [Fatal]
